FAERS Safety Report 18526457 (Version 1)
Quarter: 2020Q4

REPORT INFORMATION
  Report Type: Spontaneous
  Country: SG (occurrence: SG)
  Receive Date: 20201120
  Receipt Date: 20201120
  Transmission Date: 20210114
  Serious: Yes (Life-Threatening)
  Sender: FDA-Public Use
  Company Number: SG-TEVA-2020-SG-1851122

PATIENT
  Age: 29 Year
  Sex: Female

DRUGS (3)
  1. FOLINIC ACID [Suspect]
     Active Substance: LEUCOVORIN
     Indication: COLON CANCER STAGE III
     Dosage: MFOLFOX6 REGIMEN.
     Route: 065
  2. 5-FLUOROURACIL [Suspect]
     Active Substance: FLUOROURACIL
     Indication: COLON CANCER STAGE III
     Dosage: BIWEEKLY INFUSION
     Route: 065
  3. OXALIPLATIN. [Suspect]
     Active Substance: OXALIPLATIN
     Indication: COLON CANCER STAGE III
     Dosage: FROM THE THIRD CYCLE ONWARDS; SIMPLIFIED DE GRAMONT REGIMEN
     Route: 065

REACTIONS (2)
  - Condition aggravated [Unknown]
  - Hypokalaemia [Unknown]
